FAERS Safety Report 5028153-5 (Version None)
Quarter: 2006Q2

REPORT INFORMATION
  Report Type: 
  Country: None (occurrence: None)
  Receive Date: 20060613
  Receipt Date: 20060601
  Transmission Date: 20061013
  Serious: Yes (Death)
  Sender: FDA-Public Use
  Company Number: 2006072052

PATIENT
  Sex: Male

DRUGS (1)
  1. CELEBREX [Suspect]
     Indication: ILL-DEFINED DISORDER
     Dates: end: 20021016

REACTIONS (3)
  - BRAIN HERNIATION [None]
  - CARDIO-RESPIRATORY ARREST [None]
  - CEREBRAL ARTERY OCCLUSION [None]
